FAERS Safety Report 5620003-9 (Version None)
Quarter: 2008Q1

REPORT INFORMATION
  Report Type: 
  Country: None (occurrence: None)
  Receive Date: 20080208
  Receipt Date: 20080201
  Transmission Date: 20080703
  Serious: Yes (Hospitalization)
  Sender: FDA-Public Use
  Company Number: US-ROCHE-545013

PATIENT
  Sex: Female

DRUGS (1)
  1. BONIVA [Suspect]
     Indication: OSTEOPOROSIS
     Route: 048
     Dates: start: 20080126, end: 20080126

REACTIONS (6)
  - BLOOD CALCIUM DECREASED [None]
  - COGNITIVE DISORDER [None]
  - DIZZINESS [None]
  - DYSARTHRIA [None]
  - LOSS OF CONSCIOUSNESS [None]
  - STOMACH DISCOMFORT [None]
